FAERS Safety Report 8919868 (Version 2)
Quarter: 2012Q4

REPORT INFORMATION
  Report Type: 
  Country: FR (occurrence: FR)
  Receive Date: 20121121
  Receipt Date: 20121207
  Transmission Date: 20130627
  Serious: Yes (Hospitalization)
  Sender: FDA-Public Use
  Company Number: FR-SANOFI-AVENTIS-2012SA082947

PATIENT
  Age: 76 Year
  Sex: Male

DRUGS (19)
  1. LOVENOX [Suspect]
     Indication: CARDIAC ARRHYTHMIA
     Route: 058
     Dates: start: 20120316, end: 20120320
  2. LOVENOX [Suspect]
     Indication: CARDIAC ARRHYTHMIA
     Route: 058
     Dates: start: 20120322
  3. LASILIX [Concomitant]
     Route: 048
  4. KALEORID [Concomitant]
  5. TRIATEC [Concomitant]
  6. NEBIVOLOL [Concomitant]
     Dosage: Dose:0.25 unit(s)
     Route: 048
  7. ROSUVASTATIN CALCIUM [Concomitant]
  8. ZOLPIDEM [Concomitant]
  9. FEBUXOSTAT [Concomitant]
  10. CALCIUM CARBONATE/CITRIC ACID [Concomitant]
  11. PARACETAMOL [Concomitant]
  12. ALLOPURINOL [Concomitant]
  13. FUCIDINE [Concomitant]
  14. TAVANIC [Concomitant]
  15. MOPRAL [Concomitant]
  16. RIFADINE [Concomitant]
     Indication: SEPSIS
     Dates: start: 201203
  17. GENTAMICIN [Concomitant]
     Indication: SEPSIS
     Dates: start: 201203
  18. VANCOMYCINE [Concomitant]
     Indication: SEPSIS
     Dates: start: 201203
  19. DALACIN [Concomitant]
     Indication: SEPSIS
     Dates: start: 201203

REACTIONS (4)
  - Rhabdomyolysis [Recovered/Resolved]
  - Haematoma [Recovered/Resolved]
  - Anaemia [Recovered/Resolved]
  - Haemarthrosis [Recovered/Resolved]
